FAERS Safety Report 21136424 (Version 1)
Quarter: 2022Q3

REPORT INFORMATION
  Report Type: Report from Study
  Country: JP (occurrence: JP)
  Receive Date: 20220727
  Receipt Date: 20220727
  Transmission Date: 20221027
  Serious: Yes (Death, Other)
  Sender: FDA-Public Use
  Company Number: JP-PFIZER INC-PV202200028132

PATIENT

DRUGS (1)
  1. IRINOTECAN HYDROCHLORIDE [Suspect]
     Active Substance: IRINOTECAN HYDROCHLORIDE
     Indication: Gastrointestinal carcinoma
     Dosage: STARTING DOSE 75 MG/M2, ESCALATED IN INCREMENTS OF 25 MG/M2 UP TO 150 MG/M2, EVERY 14-DAY CYCLE, FOR
     Route: 042

REACTIONS (2)
  - Septic shock [Fatal]
  - Neutropenia [Fatal]
